FAERS Safety Report 7733781-X (Version None)
Quarter: 2011Q3

REPORT INFORMATION
  Report Type: 
  Country: None (occurrence: None)
  Receive Date: 20110907
  Receipt Date: 20110902
  Transmission Date: 20111222
  Serious: Yes (Other)
  Sender: FDA-Public Use
  Company Number: PHHY2011BR78591

PATIENT
  Sex: Female

DRUGS (1)
  1. RITALIN [Suspect]
     Indication: PSYCHOMOTOR HYPERACTIVITY
     Dosage: 0.5 DF, QD
     Route: 048
     Dates: start: 20110901, end: 20110902

REACTIONS (2)
  - GENERALISED ERYTHEMA [None]
  - SKIN HYPERTROPHY [None]
